FAERS Safety Report 19921158 (Version 1)
Quarter: 2021Q4

REPORT INFORMATION
  Report Type: Spontaneous
  Country: TR (occurrence: TR)
  Receive Date: 20211006
  Receipt Date: 20211006
  Transmission Date: 20220304
  Serious: Yes (Other)
  Sender: FDA-Public Use
  Company Number: TR-LUPIN PHARMACEUTICALS INC.-2021-18660

PATIENT
  Age: 42 Year
  Sex: Female

DRUGS (16)
  1. HYDROXYCHLOROQUINE [Suspect]
     Active Substance: HYDROXYCHLOROQUINE
     Indication: Rheumatoid arthritis
     Dosage: UNK
     Route: 065
  2. HYDROXYCHLOROQUINE [Suspect]
     Active Substance: HYDROXYCHLOROQUINE
     Indication: Sjogren^s syndrome
  3. METHYLPREDNISOLONE [Suspect]
     Active Substance: METHYLPREDNISOLONE
     Indication: Rheumatoid arthritis
     Dosage: UNK
     Route: 065
  4. METHYLPREDNISOLONE [Suspect]
     Active Substance: METHYLPREDNISOLONE
     Indication: Sjogren^s syndrome
  5. LEFLUNOMIDE [Suspect]
     Active Substance: LEFLUNOMIDE
     Indication: Rheumatoid arthritis
     Dosage: UNK
     Route: 065
  6. LEFLUNOMIDE [Suspect]
     Active Substance: LEFLUNOMIDE
     Indication: Sjogren^s syndrome
  7. ETANERCEPT [Suspect]
     Active Substance: ETANERCEPT
     Indication: Rheumatoid arthritis
     Dosage: UNK
     Route: 065
  8. ETANERCEPT [Suspect]
     Active Substance: ETANERCEPT
     Indication: Sjogren^s syndrome
  9. TOCILIZUMAB [Suspect]
     Active Substance: TOCILIZUMAB
     Indication: Rheumatoid arthritis
     Dosage: UNK
     Route: 065
  10. TOCILIZUMAB [Suspect]
     Active Substance: TOCILIZUMAB
     Indication: Sjogren^s syndrome
  11. ABATACEPT [Suspect]
     Active Substance: ABATACEPT
     Indication: Rheumatoid arthritis
     Dosage: UNK
     Route: 058
  12. ABATACEPT [Suspect]
     Active Substance: ABATACEPT
     Indication: Sjogren^s syndrome
     Dosage: 125 MILLIGRAM
     Route: 058
  13. SULFASALAZINE [Suspect]
     Active Substance: SULFASALAZINE
     Indication: Rheumatoid arthritis
     Dosage: UNK
     Route: 065
  14. SULFASALAZINE [Suspect]
     Active Substance: SULFASALAZINE
     Indication: Sjogren^s syndrome
  15. METHOTREXATE [Suspect]
     Active Substance: METHOTREXATE
     Indication: Rheumatoid arthritis
     Dosage: UNK
     Route: 065
  16. METHOTREXATE [Suspect]
     Active Substance: METHOTREXATE
     Indication: Sjogren^s syndrome

REACTIONS (3)
  - Type I hypersensitivity [Unknown]
  - Therapeutic product effect incomplete [Unknown]
  - Local reaction [Unknown]
